FAERS Safety Report 23530897 (Version 1)
Quarter: 2024Q1

REPORT INFORMATION
  Report Type: Report from Study
  Country: AR (occurrence: AR)
  Receive Date: 20240216
  Receipt Date: 20240216
  Transmission Date: 20240409
  Serious: Yes (Hospitalization, Other)
  Sender: FDA-Public Use
  Company Number: AR-002147023-NVSC2024AR003243

PATIENT
  Age: 56 Year
  Sex: Female

DRUGS (4)
  1. KISQALI [Suspect]
     Active Substance: RIBOCICLIB
     Indication: Breast cancer metastatic
     Dosage: 600 MG, QD
     Route: 048
     Dates: start: 20231208
  2. KISQALI [Suspect]
     Active Substance: RIBOCICLIB
     Dosage: 600 MG, TID
     Route: 048
     Dates: start: 20231208
  3. KISQALI [Suspect]
     Active Substance: RIBOCICLIB
     Dosage: UNK
     Route: 065
     Dates: start: 20231214, end: 20231223
  4. LETROZOLE [Suspect]
     Active Substance: LETROZOLE
     Indication: Breast cancer metastatic
     Dosage: 2.5 MG, QD
     Route: 048
     Dates: start: 20231214

REACTIONS (9)
  - Gastritis [Unknown]
  - Cholelithiasis [Unknown]
  - Cholecystitis [Unknown]
  - Peritonitis [Unknown]
  - Malaise [Unknown]
  - General physical health deterioration [Unknown]
  - Pyrexia [Unknown]
  - Nausea [Unknown]
  - Discoloured vomit [Unknown]

NARRATIVE: CASE EVENT DATE: 20231223
